FAERS Safety Report 14243785 (Version 6)
Quarter: 2018Q2

REPORT INFORMATION
  Report Type: Spontaneous
  Country: JP (occurrence: JP)
  Receive Date: 20171201
  Receipt Date: 20180423
  Transmission Date: 20180711
  Serious: Yes (Death, Life-Threatening, Hospitalization, Other)
  Sender: FDA-Public Use
  Company Number: JP-GILEAD-2017-0307540

PATIENT
  Age: 66 Year
  Sex: Male

DRUGS (7)
  1. CONIEL [Concomitant]
     Active Substance: BENIDIPINE HYDROCHLORIDE
  2. VEMLIDY [Suspect]
     Active Substance: TENOFOVIR ALAFENAMIDE FUMARATE
     Indication: CHRONIC HEPATITIS B
     Dosage: 25 MG, UNK
     Route: 048
     Dates: start: 20170809, end: 20171111
  3. FRANDOL S [Concomitant]
     Active Substance: ISOSORBIDE DINITRATE
  4. TAKECAB [Concomitant]
     Active Substance: VONOPRAZAN FUMURATE
  5. LIVALO [Concomitant]
     Active Substance: PITAVASTATIN CALCIUM
  6. BARACLUDE [Concomitant]
     Active Substance: ENTECAVIR
     Indication: CHRONIC HEPATITIS B
  7. BAYASPIRIN [Concomitant]
     Active Substance: ASPIRIN

REACTIONS (2)
  - Diffuse large B-cell lymphoma recurrent [Fatal]
  - Sepsis [Recovering/Resolving]

NARRATIVE: CASE EVENT DATE: 20171004
